FAERS Safety Report 6741315-1 (Version None)
Quarter: 2010Q2

REPORT INFORMATION
  Report Type: 
  Country: None (occurrence: None)
  Receive Date: 20100526
  Receipt Date: 20100514
  Transmission Date: 20101027
  Serious: Yes (Other)
  Sender: FDA-Public Use
  Company Number: US-PFIZER INC-2010024809

PATIENT
  Sex: Male
  Weight: 69.388 kg

DRUGS (1)
  1. SUTENT [Suspect]
     Indication: METASTATIC RENAL CELL CARCINOMA
     Dosage: 37.5 MG, DAILY FOR 28 DAYS EVERY 42 DAYS
     Route: 048
     Dates: start: 20090626

REACTIONS (2)
  - HAEMOPTYSIS [None]
  - PARAESTHESIA [None]
